FAERS Safety Report 4868611-7 (Version None)
Quarter: 2005Q4

REPORT INFORMATION
  Report Type: 
  Country: None (occurrence: None)
  Receive Date: 20051223
  Receipt Date: 20051212
  Transmission Date: 20060501
  Serious: Yes (Life-Threatening)
  Sender: FDA-Public Use
  Company Number: 13070

PATIENT
  Age: 65 Year
  Sex: Female
  Weight: 68 kg

DRUGS (3)
  1. PACLITAXEL [Suspect]
     Indication: OVARIAN CANCER
     Dates: start: 20051101
  2. TOREM [Concomitant]
  3. NEXIUM [Concomitant]

REACTIONS (3)
  - DERMATITIS ALLERGIC [None]
  - PETECHIAE [None]
  - SWELLING FACE [None]
